FAERS Safety Report 4350934-1 (Version None)
Quarter: 2004Q2

REPORT INFORMATION
  Report Type: 
  Country: None (occurrence: None)
  Receive Date: 20040430
  Receipt Date: 20040319
  Transmission Date: 20050107
  Serious: Yes (Other)
  Sender: FDA-Public Use
  Company Number: FR-GLAXOSMITHKLINE-B0327761A

PATIENT
  Age: 39 Year
  Sex: Female
  Weight: 69 kg

DRUGS (1)
  1. ZYBAN [Suspect]
     Indication: EX-SMOKER
     Dosage: 150MG SEE DOSAGE TEXT
     Route: 048
     Dates: start: 20040113, end: 20040220

REACTIONS (5)
  - ARTHRALGIA [None]
  - HAEMATOMA [None]
  - MYALGIA [None]
  - OEDEMA PERIPHERAL [None]
  - SERUM SICKNESS [None]
